FAERS Safety Report 7488403-2 (Version None)
Quarter: 2011Q2

REPORT INFORMATION
  Report Type: 
  Country: None (occurrence: None)
  Receive Date: 20110518
  Receipt Date: 20110513
  Transmission Date: 20111010
  Serious: Yes (Hospitalization)
  Sender: FDA-Public Use
  Company Number: FR-ALLERGAN-1106647US

PATIENT
  Sex: Female

DRUGS (2)
  1. BOTOX [Suspect]
     Indication: HYPERTONIC BLADDER
     Dosage: UNK
     Dates: start: 20110513, end: 20110513
  2. ANTIBIOTICS [Concomitant]
     Indication: URINARY TRACT INFECTION

REACTIONS (3)
  - PYREXIA [None]
  - TREMOR [None]
  - CHILLS [None]
